FAERS Safety Report 5992015-7 (Version None)
Quarter: 2008Q4

REPORT INFORMATION
  Report Type: 
  Country: None (occurrence: None)
  Receive Date: 20081211
  Receipt Date: 20081204
  Transmission Date: 20090506
  Serious: Yes (Disabling, Other)
  Sender: FDA-Public Use
  Company Number: US-ROXANE LABORATORIES, INC.-2008-RO-00358RO

PATIENT
  Age: 51 Year
  Sex: Female

DRUGS (3)
  1. LIDOCAINE [Suspect]
     Indication: CARPAL TUNNEL SYNDROME
     Dosage: 1.5ML
  2. TRIAMCINOLONE ACETONIDE [Suspect]
     Indication: CARPAL TUNNEL SYNDROME
     Dosage: 1.5ML
  3. NSAID [Concomitant]
     Indication: CARPAL TUNNEL SYNDROME

REACTIONS (7)
  - BURNING SENSATION [None]
  - ECCHYMOSIS [None]
  - EXTREMITY NECROSIS [None]
  - HYPOAESTHESIA [None]
  - ISCHAEMIA [None]
  - PERIPHERAL EMBOLISM [None]
  - PETECHIAE [None]
